FAERS Safety Report 21391761 (Version 2)
Quarter: 2022Q4

REPORT INFORMATION
  Report Type: Report from Study
  Country: US (occurrence: US)
  Receive Date: 20220929
  Receipt Date: 20221006
  Transmission Date: 20230112
  Serious: Yes (Hospitalization)
  Sender: FDA-Public Use
  Company Number: US-GLAXOSMITHKLINE-US2022GSK139599

PATIENT

DRUGS (14)
  1. BUPROPION HYDROCHLORIDE [Suspect]
     Active Substance: BUPROPION HYDROCHLORIDE
     Indication: Product used for unknown indication
     Dosage: 300 MG, QD,1 IN 24 HR, EVERY MORNING
     Route: 048
  2. XIFAXAN [Suspect]
     Active Substance: RIFAXIMIN
     Indication: Product used for unknown indication
     Dosage: 550 MG
     Route: 048
  3. XANAX [Concomitant]
     Active Substance: ALPRAZOLAM
     Indication: Product used for unknown indication
     Dosage: UNK, 1 MG
     Route: 048
  4. GLYBURIDE TABLET [Concomitant]
     Indication: Product used for unknown indication
     Dosage: UNK, 5 MG
     Route: 048
  5. DIABETA (GLYBURIDE) [Concomitant]
     Indication: Diabetes mellitus
     Dosage: UNK, 5MG
     Route: 048
  6. MICRONASE [Concomitant]
     Active Substance: GLYBURIDE
     Indication: Product used for unknown indication
     Dosage: UNK, 5 MG
     Route: 048
  7. BYSTOLIC [Concomitant]
     Active Substance: NEBIVOLOL HYDROCHLORIDE
     Indication: Product used for unknown indication
     Dosage: UNK, 10 MG
     Route: 048
  8. MICRO-K [Concomitant]
     Active Substance: POTASSIUM CHLORIDE
     Indication: Product used for unknown indication
     Dosage: 10 MILLIEQUIVALENTS
     Route: 048
  9. OZEMPIC [Concomitant]
     Active Substance: SEMAGLUTIDE
     Indication: Diabetes mellitus
     Dosage: UNK
  10. LACTULOSE [Concomitant]
     Active Substance: LACTULOSE
     Indication: Product used for unknown indication
     Dosage: UNK
  11. CORGARD [Concomitant]
     Active Substance: NADOLOL
     Indication: Product used for unknown indication
     Dosage: 20 MG
     Route: 048
  12. CRESTOR [Concomitant]
     Active Substance: ROSUVASTATIN CALCIUM
     Indication: Product used for unknown indication
     Dosage: 20 MG, QD (1 IN 1 D)
     Route: 048
  13. ALDACTONE [Concomitant]
     Active Substance: SPIRONOLACTONE
     Indication: Product used for unknown indication
     Dosage: 50 MG, QD 1 IN 1 D)
     Route: 048
  14. DEMADEX TABLET [Concomitant]
     Indication: Product used for unknown indication
     Dosage: 10 MG, QD, (1 IN 1 D)
     Route: 048

REACTIONS (3)
  - Blood creatinine increased [Unknown]
  - Balance disorder [Unknown]
  - Tremor [Unknown]
